FAERS Safety Report 8369940-5 (Version None)
Quarter: 2012Q2

REPORT INFORMATION
  Report Type: 
  Country: None (occurrence: None)
  Receive Date: 20120518
  Receipt Date: 20120514
  Transmission Date: 20120825
  Serious: Yes (Other)
  Sender: FDA-Public Use
  Company Number: US-PFIZER INC-2012101005

PATIENT
  Sex: Female
  Weight: 81.179 kg

DRUGS (6)
  1. LEVAQUIN [Suspect]
     Dosage: UNK
  2. AMLODIPINE BESYLATE [Suspect]
     Dosage: 10 MG, DAILY
     Route: 048
     Dates: start: 20100101, end: 20100101
  3. MEDROL [Suspect]
     Indication: INFLAMMATION
     Dosage: UNK, DAILY
     Dates: start: 20100101, end: 20100101
  4. AMLODIPINE BESYLATE [Suspect]
     Indication: HYPERTENSION
     Dosage: 10 MG, DAILY
     Route: 048
     Dates: start: 20100101
  5. XANAX [Concomitant]
     Dosage: 0.5 MG, 1X/DAY
  6. SIMVASTATIN [Suspect]
     Indication: BLOOD CHOLESTEROL
     Dosage: 5 MG, 1X/DAY
     Dates: start: 20100101

REACTIONS (7)
  - FEELING ABNORMAL [None]
  - SENSORY DISTURBANCE [None]
  - URTICARIA [None]
  - HYPERTENSION [None]
  - DRUG INEFFECTIVE [None]
  - PALPITATIONS [None]
  - ARTERIAL DISORDER [None]
